FAERS Safety Report 9813111 (Version 2)
Quarter: 2014Q1

REPORT INFORMATION
  Report Type: Spontaneous
  Country: FI (occurrence: None)
  Receive Date: 20140109
  Receipt Date: 20140206
  Transmission Date: 20141002
  Serious: Yes (Life-Threatening)
  Sender: FDA-Public Use
  Company Number: 2114165

PATIENT
  Age: 68 Year
  Sex: Male

DRUGS (12)
  1. DEXMEDETOMIDINE HYDROCHLORIDE [Suspect]
     Indication: CONFUSIONAL STATE
     Route: 042
     Dates: start: 20131215, end: 20131215
  2. PRIMASPAN [Concomitant]
  3. CARDACE [Concomitant]
  4. KALCIPOS [Concomitant]
  5. KALEORID [Concomitant]
  6. SERENASE [Concomitant]
  7. SIMVASTATIN [Concomitant]
  8. SOMAC [Concomitant]
  9. KLEXANE [Concomitant]
  10. PLAVIX [Concomitant]
  11. PREDNISOLON [Concomitant]
  12. BISOPROLOL [Concomitant]

REACTIONS (5)
  - Loss of consciousness [None]
  - Atrioventricular block complete [None]
  - Bradycardia [None]
  - Convulsion [None]
  - Off label use [None]
